FAERS Safety Report 7197946-0 (Version None)
Quarter: 2010Q4

REPORT INFORMATION
  Report Type: 
  Country: None (occurrence: None)
  Receive Date: 20101203
  Receipt Date: 20101119
  Transmission Date: 20110411
  Serious: Yes (Other)
  Sender: FDA-Public Use
  Company Number: B0686520A

PATIENT
  Age: 54 Year
  Sex: Female

DRUGS (2)
  1. BUPROPION HCL [Suspect]
  2. LAMOTRIGINE [Suspect]

REACTIONS (2)
  - PSEUDOLYMPHOMA [None]
  - RASH [None]
